FAERS Safety Report 8406817-0 (Version None)
Quarter: 2012Q2

REPORT INFORMATION
  Report Type: 
  Country: None (occurrence: None)
  Receive Date: 20120529
  Receipt Date: 20080331
  Transmission Date: 20120825
  Serious: Yes (Other)
  Sender: FDA-Public Use
  Company Number: 000947

PATIENT
  Age: 93 Year
  Sex: Female

DRUGS (1)
  1. PLETAL [Suspect]
     Indication: CEREBRAL INFARCTION
     Dosage: 50 MG, BID, ORAL
     Route: 048
     Dates: start: 20070718, end: 20080122

REACTIONS (3)
  - AGEUSIA [None]
  - DEMENTIA [None]
  - DYSGEUSIA [None]
